FAERS Safety Report 6756434-3 (Version None)
Quarter: 2010Q2

REPORT INFORMATION
  Report Type: 
  Country: None (occurrence: None)
  Receive Date: 20100604
  Receipt Date: 20100527
  Transmission Date: 20101027
  Serious: Yes (Life-Threatening)
  Sender: FDA-Public Use
  Company Number: A0861707A

PATIENT
  Age: 75 Year
  Sex: Male

DRUGS (6)
  1. LOVAZA [Suspect]
     Dosage: 1CAP TWICE PER DAY
     Route: 048
  2. MULTI-VITAMIN [Concomitant]
  3. COENZYME Q10 [Concomitant]
  4. COUMADIN [Concomitant]
  5. ALLEGRA [Concomitant]
  6. FLECAINIDE ACETATE [Concomitant]

REACTIONS (9)
  - ABDOMINAL DISCOMFORT [None]
  - BACK PAIN [None]
  - BLOOD CHOLESTEROL INCREASED [None]
  - BLOOD TRIGLYCERIDES INCREASED [None]
  - CHEST PAIN [None]
  - ERUCTATION [None]
  - MYALGIA [None]
  - PAIN IN EXTREMITY [None]
  - POOR QUALITY SLEEP [None]
